FAERS Safety Report 17908850 (Version 1)
Quarter: 2020Q2

REPORT INFORMATION
  Report Type: Spontaneous
  Country: BE (occurrence: BE)
  Receive Date: 20200617
  Receipt Date: 20200617
  Transmission Date: 20200714
  Serious: Yes (Other)
  Sender: FDA-Public Use
  Company Number: BE-ROCHE-2048512

PATIENT
  Sex: Male

DRUGS (3)
  1. ZALDIAR [Interacting]
     Active Substance: ACETAMINOPHEN\TRAMADOL HYDROCHLORIDE
     Indication: PRODUCT USED FOR UNKNOWN INDICATION
     Route: 065
  2. DIAZEPAM. [Suspect]
     Active Substance: DIAZEPAM
     Indication: BACK PAIN
     Route: 065
  3. TEMESTA [LORAZEPAM] [Interacting]
     Active Substance: LORAZEPAM
     Indication: PRODUCT USED FOR UNKNOWN INDICATION
     Route: 065

REACTIONS (3)
  - Dizziness [Unknown]
  - Syncope [Unknown]
  - Drug interaction [Unknown]

NARRATIVE: CASE EVENT DATE: 20171017
